FAERS Safety Report 26041196 (Version 1)
Quarter: 2025Q4

REPORT INFORMATION
  Report Type: Spontaneous
  Country: EU (occurrence: EU)
  Receive Date: 20251113
  Receipt Date: 20251113
  Transmission Date: 20260117
  Serious: Yes (Other)
  Sender: ROCHE
  Company Number: EU-ROCHE-10000365142

PATIENT
  Age: 66 Year
  Sex: Male

DRUGS (3)
  1. ATEZOLIZUMAB [Suspect]
     Active Substance: ATEZOLIZUMAB
     Indication: Hepatocellular carcinoma
     Route: 065
     Dates: start: 20220721
  2. BEVACIZUMAB [Suspect]
     Active Substance: BEVACIZUMAB
     Indication: Hepatocellular carcinoma
     Route: 065
     Dates: start: 20220721
  3. LENVATINIB [Concomitant]
     Active Substance: LENVATINIB

REACTIONS (6)
  - Thrombocytopenia [Unknown]
  - Hypothyroidism [Unknown]
  - Rash pruritic [Unknown]
  - Accelerated hypertension [Unknown]
  - Hyperbilirubinaemia [Unknown]
  - Liver function test increased [Unknown]

NARRATIVE: CASE EVENT DATE: 20230101
